FAERS Safety Report 7619151-3 (Version None)
Quarter: 2011Q3

REPORT INFORMATION
  Report Type: 
  Country: None (occurrence: None)
  Receive Date: 20110718
  Receipt Date: 20110708
  Transmission Date: 20111222
  Serious: Yes (Other)
  Sender: FDA-Public Use
  Company Number: US-ASTRAZENECA-2011SE36284

PATIENT
  Age: 63 Year
  Sex: Male

DRUGS (15)
  1. PLAVIX [Interacting]
     Route: 048
     Dates: start: 20080101
  2. HYZAAR [Concomitant]
  3. HYDROCODONE [Concomitant]
  4. FISH OIL [Concomitant]
  5. PRILOSEC [Suspect]
     Indication: GASTRIC ULCER
     Route: 048
     Dates: start: 20110101
  6. PLAVIX [Interacting]
     Route: 048
  7. METHOTREXATE [Concomitant]
  8. PLAVIX [Interacting]
     Route: 048
  9. VITAMIN TAB [Concomitant]
  10. PLAVIX [Interacting]
     Route: 048
  11. METOPROLOL TARTRATE [Concomitant]
  12. VIAGRA [Concomitant]
  13. PLAVIX [Interacting]
     Route: 048
  14. PROTONIX [Concomitant]
  15. LOVASTATIN [Concomitant]

REACTIONS (6)
  - DRUG INTERACTION [None]
  - CARDIAC DISORDER [None]
  - CORONARY ARTERIAL STENT INSERTION [None]
  - MYOCARDIAL INFARCTION [None]
  - DRUG INEFFECTIVE [None]
  - GASTRIC ULCER [None]
